FAERS Safety Report 4401394-3 (Version None)
Quarter: 2004Q3

REPORT INFORMATION
  Report Type: 
  Country: None (occurrence: None)
  Receive Date: 20040907
  Receipt Date: 20040409
  Transmission Date: 20050211
  Serious: No
  Sender: FDA-Public Use
  Company Number: US-BRISTOL-MYERS SQUIBB COMPANY-12560165

PATIENT
  Age: 42 Year
  Sex: Male

DRUGS (2)
  1. DEFINITY [Suspect]
     Indication: ULTRASOUND SCAN
     Dosage: 1 VIAL OF DEFINITY DILUTED WITH SALINE
     Route: 040
     Dates: start: 20040325, end: 20040325
  2. COUMADIN [Suspect]

REACTIONS (1)
  - FAECES DISCOLOURED [None]
